FAERS Safety Report 19870299 (Version 1)
Quarter: 2021Q3

REPORT INFORMATION
  Report Type: Spontaneous
  Country: JP (occurrence: JP)
  Receive Date: 20210922
  Receipt Date: 20210922
  Transmission Date: 20211014
  Serious: Yes (Other)
  Sender: FDA-Public Use
  Company Number: JP-PFIZER INC-202101201686

PATIENT
  Age: 69 Year
  Sex: Male

DRUGS (1)
  1. METHOTREXATE. [Suspect]
     Active Substance: METHOTREXATE
     Dosage: 3200 MG, DAILY
     Route: 041
     Dates: start: 20210914

REACTIONS (2)
  - Sinus node dysfunction [Recovered/Resolved]
  - Atrioventricular block [Recovered/Resolved]

NARRATIVE: CASE EVENT DATE: 20210914
